FAERS Safety Report 9377983 (Version 2)
Quarter: 2013Q3

REPORT INFORMATION
  Report Type: Spontaneous
  Country: JP (occurrence: JP)
  Receive Date: 20130701
  Receipt Date: 20130722
  Transmission Date: 20140515
  Serious: Yes (Hospitalization, Congenital Anomaly, Other)
  Sender: FDA-Public Use
  Company Number: JP-ELI_LILLY_AND_COMPANY-JP201306002307

PATIENT
  Age: 23 Year
  Sex: Male

DRUGS (6)
  1. ZYPREXA [Suspect]
     Indication: SCHIZOPHRENIA, PARANOID TYPE
     Dosage: UNK
     Route: 048
     Dates: start: 20101025, end: 20101128
  2. ZYPREXA [Suspect]
     Dosage: UNK
     Route: 048
     Dates: start: 20101220, end: 201104
  3. ZYPREXA [Suspect]
     Dosage: UNK
     Route: 048
     Dates: start: 20120913, end: 20130528
  4. LANDSEN [Concomitant]
     Dosage: UNK
     Route: 048
     Dates: start: 20120903
  5. EVAMYL [Concomitant]
     Dosage: UNK
     Route: 048
     Dates: start: 20120913
  6. LONASEN [Concomitant]
     Dosage: UNK
     Route: 048
     Dates: start: 20121001

REACTIONS (7)
  - Convulsion [Unknown]
  - Altered state of consciousness [Unknown]
  - Diabetes mellitus [Unknown]
  - Aspartate aminotransferase increased [Recovered/Resolved]
  - Hepatic steatosis [Unknown]
  - Increased appetite [Unknown]
  - Weight increased [Unknown]
